FAERS Safety Report 25738059 (Version 1)
Quarter: 2025Q3

REPORT INFORMATION
  Report Type: Spontaneous
  Country: EU (occurrence: EU)
  Receive Date: 20250829
  Receipt Date: 20250829
  Transmission Date: 20251020
  Serious: Yes (Hospitalization, Other)
  Sender: AMGEN
  Company Number: EU-AMGEN-ESPSP2025167928

PATIENT
  Age: 64 Year
  Sex: Male

DRUGS (4)
  1. FILGRASTIM [Suspect]
     Active Substance: FILGRASTIM
     Indication: Neutropenia
     Route: 065
  2. EPOETIN ALFA [Suspect]
     Active Substance: ERYTHROPOIETIN
     Indication: Aplastic anaemia
     Route: 065
  3. PEGINTERFERON ALFA-2A\RIBAVIRIN [Suspect]
     Active Substance: PEGINTERFERON ALFA-2A\RIBAVIRIN
     Indication: Aplastic anaemia
     Route: 065
  4. SIMEPREVIR [Suspect]
     Active Substance: SIMEPREVIR
     Indication: Aplastic anaemia
     Route: 065

REACTIONS (2)
  - Aplastic anaemia [Not Recovered/Not Resolved]
  - Enterobacter sepsis [Not Recovered/Not Resolved]
